FAERS Safety Report 7129652-2 (Version None)
Quarter: 2010Q4

REPORT INFORMATION
  Report Type: 
  Country: None (occurrence: None)
  Receive Date: 20101130
  Receipt Date: 20101122
  Transmission Date: 20110411
  Serious: Yes (Hospitalization, Other)
  Sender: FDA-Public Use
  Company Number: DE-CEPHALON-2010006188

PATIENT
  Sex: Female

DRUGS (12)
  1. TREANDA [Suspect]
     Indication: B-CELL LYMPHOMA
     Route: 042
     Dates: start: 20100830, end: 20101026
  2. PREDNISONE [Concomitant]
  3. RITUXIMAB [Concomitant]
  4. URALYT [Concomitant]
  5. RED BLOOD CELLS [Concomitant]
  6. DELIX [Concomitant]
  7. TOREM [Concomitant]
  8. EUTHYROX [Concomitant]
  9. ALLOPURINOL [Concomitant]
  10. LYRICA [Concomitant]
  11. PRAVASTATIN [Concomitant]
  12. INSULIN [Concomitant]

REACTIONS (4)
  - ASTHENIA [None]
  - GENERAL PHYSICAL HEALTH DETERIORATION [None]
  - HYSTERECTOMY [None]
  - NEUTROPENIA [None]
